FAERS Safety Report 19380171 (Version 2)
Quarter: 2021Q2

REPORT INFORMATION
  Report Type: Spontaneous
  Country: DE (occurrence: DE)
  Receive Date: 20210607
  Receipt Date: 20210629
  Transmission Date: 20210717
  Serious: Yes (Hospitalization, Other)
  Sender: FDA-Public Use
  Company Number: DE-AUROBINDO-AUR-APL-2021-022739

PATIENT
  Sex: Female
  Weight: 74 kg

DRUGS (3)
  1. LHRH [Concomitant]
     Active Substance: GONADORELIN DIACETATE TETRAHYDRATE
     Indication: HER2 NEGATIVE BREAST CANCER
     Dosage: 3.6 MILLIGRAM 1 MONTH
     Route: 058
     Dates: start: 20190613, end: 20200720
  2. ANASTROZOLE. [Suspect]
     Active Substance: ANASTROZOLE
     Indication: HER2 NEGATIVE BREAST CANCER
     Dosage: 1 MILLIGRAM, ONCE A DAY (DAILY DOSE)
     Route: 048
     Dates: start: 20190614
  3. KISQALI [Suspect]
     Active Substance: RIBOCICLIB
     Indication: HER2 NEGATIVE BREAST CANCER
     Dosage: 600 MILLIGRAM (21 DAYS INTAKE, 7 DAYS PAUSE)
     Route: 048
     Dates: start: 20190614, end: 20200720

REACTIONS (16)
  - Hot flush [Not Recovered/Not Resolved]
  - Nail toxicity [Not Recovered/Not Resolved]
  - Fatigue [Unknown]
  - Abdominal pain [Unknown]
  - Aspartate aminotransferase increased [Not Recovered/Not Resolved]
  - Malignant neoplasm progression [Unknown]
  - Visual impairment [Not Recovered/Not Resolved]
  - Impaired healing [Recovered/Resolved]
  - Hepatic pain [Recovered/Resolved]
  - Dizziness [Recovered/Resolved]
  - HER2 negative breast cancer [Unknown]
  - Bronchitis [Recovered/Resolved]
  - Asthenia [Not Recovered/Not Resolved]
  - Dry skin [Not Recovered/Not Resolved]
  - Alanine aminotransferase increased [Not Recovered/Not Resolved]
  - Palpitations [Not Recovered/Not Resolved]

NARRATIVE: CASE EVENT DATE: 20190701
